FAERS Safety Report 21740573 (Version 1)
Quarter: 2022Q4

REPORT INFORMATION
  Report Type: Spontaneous
  Country: NL (occurrence: NL)
  Receive Date: 20221216
  Receipt Date: 20221216
  Transmission Date: 20230112
  Serious: Yes (Life-Threatening, Hospitalization)
  Sender: FDA-Public Use
  Company Number: None

PATIENT
  Sex: Male
  Weight: 78.5 kg

DRUGS (19)
  1. DICLOFENAC SODIUM [Suspect]
     Active Substance: DICLOFENAC SODIUM
     Indication: Pain
     Dosage: DURATION 3 YEARS BRAND NAME NOT SPECIFIED
     Route: 065
     Dates: start: 20200101, end: 20221103
  2. METFORMIN HYDROCHLORIDE [Suspect]
     Active Substance: METFORMIN HYDROCHLORIDE
     Indication: Type 2 diabetes mellitus
     Dosage: 3DD, DURATION 4 YEARS, FREQUENCY TIME  8 HOURS,FORM STRENGTH 1000 MG
     Dates: start: 20190101, end: 20221103
  3. IBUPROFEN [Suspect]
     Active Substance: IBUPROFEN
     Indication: Pain
     Dosage: BRAND NAME NOT SPECIFIED, FORM STRENGTH 100 MG, DURATION 3 WEEKS
     Dates: start: 20200101, end: 20221103
  4. CYANOCOBALAMIN [Concomitant]
     Active Substance: CYANOCOBALAMIN
     Indication: Product used for unknown indication
  5. SUNITINIB [Concomitant]
     Active Substance: SUNITINIB
     Indication: Product used for unknown indication
     Dosage: 1DD1, FORM STRENGTH 12.5 MG, FREQ TIME  1 DAY, BRAND NAME NOT SPECIFIED
  6. FUROSEMIDE [Concomitant]
     Active Substance: FUROSEMIDE
     Indication: Product used for unknown indication
     Dosage: 40 MG, , 1DD, BRAND NAME NOT SPECIFIED, FORM STRENGTH  40 MG, FREQ TIME 1 DAY
     Route: 048
  7. SPIRONOLACTONE [Concomitant]
     Active Substance: SPIRONOLACTONE
     Indication: Product used for unknown indication
     Dosage: 1DD1, BRAND NAME NOT SPECIFIED, FORM STRENGTH 12.5 MG, FREQ TIME1 DAY
  8. ROSUVASTATIN [Concomitant]
     Active Substance: ROSUVASTATIN
     Indication: Product used for unknown indication
     Dosage: 1DD1, BRAND NAME NOT SPECIFIED, FRQ TIME 1 DAY, FORM STRENGTH 40 MG
  9. VITAMIN D3 [Concomitant]
     Active Substance: CHOLECALCIFEROL
     Indication: Product used for unknown indication
  10. PANTOPRAZOLE SODIUM [Concomitant]
     Active Substance: PANTOPRAZOLE SODIUM
     Indication: Product used for unknown indication
     Dosage: 1DD1, BRAND NAME NOT SPECIFIED, FORM STRENGTH  40 MG, FREQ TIME 1 DAY
  11. METOCLOPRAMIDE [Concomitant]
     Active Substance: METOCLOPRAMIDE
     Indication: Product used for unknown indication
     Dosage: 3DD, BRAND NAME NOT SPECIFIED, FORM STRENGTH  10 MG, FREQUENCY TIME  8 HOURS
  12. IVABRADINE [Concomitant]
     Active Substance: IVABRADINE
     Indication: Product used for unknown indication
     Dosage: 1DD1, BRAND NAME NOT SPECIFIED FORM STRENGTH  5 MG, FRQ TIME 1 DAY
  13. SUNITINIB [Concomitant]
     Active Substance: SUNITINIB
     Indication: Product used for unknown indication
     Dosage: 1DD1, BRAND NAME NOT SPECIFIED, FORM STRENGTH  25 MG, FRQ TIME 1 DAY
  14. SACUBITRIL\VALSARTAN [Concomitant]
     Active Substance: SACUBITRIL\VALSARTAN
     Indication: Product used for unknown indication
     Dosage: 2DD, BRAND NAME NOT SPECIFIED,  49/51MG , FREQUENCY TIME 12 HOURS
  15. NIVOLUMAB [Concomitant]
     Active Substance: NIVOLUMAB
     Indication: Product used for unknown indication
     Dosage: BRAND NAME NOT SPECIFIED, INTRAVENOUS DRIP
  16. INSULIN GLARGINE [Concomitant]
     Active Substance: INSULIN GLARGINE
     Indication: Product used for unknown indication
     Dosage: BRAND NAME NOT SPECIFIED, 300E/ML INJVLST / BRAND NAME NOT SPECIFIED
  17. INSULINE ASPART [Concomitant]
     Indication: Product used for unknown indication
     Dosage: BRAND NAME NOT SPECIFIED, INJVLST 100E/ML / NOVORAPID NOVOLET INJVLST 100E/ML PEN 3ML
  18. DENOSUMAB [Concomitant]
     Active Substance: DENOSUMAB
     Indication: Product used for unknown indication
     Dosage: 1 PIECE, SUBCUTANEOUSLY, 1X EVERY 4 WEEKS, 70MG/ML / XGEVA 120 INJVLST 70MG/ML FLASH 1, LOAD
  19. IPILIMUMAB [Concomitant]
     Active Substance: IPILIMUMAB
     Indication: Product used for unknown indication
     Dosage: BRAND NAME NOT SPECIFIED; INTRAVENOUS DRIP

REACTIONS (2)
  - Lactic acidosis [Recovered/Resolved]
  - Renal failure [Recovered/Resolved]
